FAERS Safety Report 7549044-1 (Version None)
Quarter: 2011Q2

REPORT INFORMATION
  Report Type: 
  Country: None (occurrence: None)
  Receive Date: 20110615
  Receipt Date: 20110608
  Transmission Date: 20111010
  Serious: Yes (Death)
  Sender: FDA-Public Use
  Company Number: US-ROCHE-781667

PATIENT
  Sex: Female

DRUGS (1)
  1. XELODA [Suspect]
     Dosage: FREQUENCY REPORTED AS BID FOR 2 WEEKS ON / 1 WEEK OFF
     Route: 048
     Dates: start: 20110112

REACTIONS (2)
  - ASTHENIA [None]
  - DEATH [None]
